FAERS Safety Report 18066157 (Version 1)
Quarter: 2020Q3

REPORT INFORMATION
  Report Type: Spontaneous
  Country: CH (occurrence: CH)
  Receive Date: 20200724
  Receipt Date: 20200724
  Transmission Date: 20201103
  Serious: Yes (Hospitalization, Other)
  Sender: FDA-Public Use
  Company Number: CH-ASTRAZENECA-2020SE81550

PATIENT
  Age: 721 Month
  Sex: Male

DRUGS (7)
  1. ANTICOAGULANT THERAPY [Concomitant]
     Active Substance: UNSPECIFIED INGREDIENT
  2. TAGRISSO [Suspect]
     Active Substance: OSIMERTINIB
     Route: 048
     Dates: start: 201904
  3. CALCIMAGON [Concomitant]
     Active Substance: CALCIUM
     Indication: DRUG THERAPY
  4. DENOSUMAB [Concomitant]
     Active Substance: DENOSUMAB
     Dosage: ONCE PER 1?3 MONTH
  5. TAGRISSO [Suspect]
     Active Substance: OSIMERTINIB
     Route: 048
  6. STEROID [Concomitant]
     Active Substance: UNSPECIFIED INGREDIENT
  7. TAGRISSO [Suspect]
     Active Substance: OSIMERTINIB
     Route: 048

REACTIONS (4)
  - Pneumonitis [Recovered/Resolved]
  - Pneumonia [Recovered/Resolved]
  - Malignant neoplasm progression [Unknown]
  - Pulmonary embolism [Recovered/Resolved]

NARRATIVE: CASE EVENT DATE: 201907
